FAERS Safety Report 4994173-X (Version None)
Quarter: 2006Q2

REPORT INFORMATION
  Report Type: 
  Country: None (occurrence: None)
  Receive Date: 20060503
  Receipt Date: 20060424
  Transmission Date: 20061013
  Serious: Yes (Death, Hospitalization)
  Sender: FDA-Public Use
  Company Number: 29083

PATIENT
  Age: 71 Year
  Sex: Female

DRUGS (13)
  1. NUELIN SA                 (THEOPHYLLINE) [Suspect]
     Dosage: 350 MG (175 MG, 2 IN 1 DAY(S))
     Route: 048
     Dates: start: 20051001
  2. SULFINPYRAZONE [Suspect]
     Dosage: 100 MG (100 MG, IN THE MORNING)
     Route: 048
     Dates: start: 20031222
  3. PREDNISOLONE [Suspect]
     Dosage: 10 MG (10 MG, IN THE MORNING)
     Route: 048
     Dates: start: 20051031
  4. PIROXICAM [Suspect]
     Dosage: 40 MG (20 MG, 2 IN 1 DAY(S))
     Route: 048
     Dates: start: 20031222
  5. ASPIRIN [Suspect]
     Dosage: 300 MG (150 MG, MORNING AND EVENING)
     Route: 048
     Dates: start: 20051001
  6. DIHYDROCODEINE [Concomitant]
  7. RANITIDINE [Concomitant]
  8. SALBUTAMOL AEROSOL            (SALBUTAMOL/ALBUTEROL SULFATE) [Concomitant]
  9. BECLOMETHASONE          (BECLOMETHASONE DIPROPIONATE) [Concomitant]
  10. GAVISCON [Concomitant]
  11. ADIZEM [Concomitant]
  12. AZATHIOPRINE [Concomitant]
  13. DIAZEPAM [Concomitant]

REACTIONS (3)
  - CARDIAC ARREST [None]
  - DUODENAL ULCER PERFORATION [None]
  - MYOCARDIAL ISCHAEMIA [None]
